FAERS Safety Report 8934353 (Version 1)
Quarter: 2012Q4

REPORT INFORMATION
  Report Type: 
  Country: DE (occurrence: DE)
  Receive Date: 20121129
  Receipt Date: 20121129
  Transmission Date: 20130627
  Serious: Yes (Life-Threatening, Hospitalization, Disabling, Other)
  Sender: FDA-Public Use
  Company Number: DE-009507513-1207DEU010819

PATIENT
  Age: 66 Year
  Sex: Female
  Weight: 60 kg

DRUGS (5)
  1. SIMVASTATIN [Suspect]
     Indication: BLOOD CHOLESTEROL INCREASED
     Dosage: 40 mg, qd
     Route: 048
     Dates: start: 201110, end: 201111
  2. SIMVASTATIN [Suspect]
     Indication: CORONARY ARTERY DISEASE
     Dosage: UNK
     Route: 048
  3. REYATAZ [Suspect]
     Indication: HIV INFECTION
     Dosage: 300 mg, qd
     Route: 048
     Dates: end: 201111
  4. REYATAZ [Suspect]
     Dosage: 300 mg, qd
     Route: 048
     Dates: start: 201111
  5. ANTIVIRAL (UNSPECIFIED) [Concomitant]

REACTIONS (3)
  - Rhabdomyolysis [Recovering/Resolving]
  - Myalgia [Unknown]
  - Bowen^s disease [Unknown]
